FAERS Safety Report 7413818-8 (Version None)
Quarter: 2011Q2

REPORT INFORMATION
  Report Type: 
  Country: None (occurrence: None)
  Receive Date: 20110413
  Receipt Date: 20110413
  Transmission Date: 20111010
  Serious: Yes (Hospitalization)
  Sender: FDA-Public Use
  Company Number: US-ABBOTT-11P-163-0717029-00

PATIENT
  Sex: Male

DRUGS (6)
  1. DEPAKOTE [Suspect]
     Indication: MENTAL RETARDATION
  2. RISPERDAL [Concomitant]
     Indication: ATTENTION DEFICIT/HYPERACTIVITY DISORDER
  3. DEPAKOTE [Suspect]
     Indication: ATTENTION DEFICIT/HYPERACTIVITY DISORDER
  4. RISPERDAL [Concomitant]
     Indication: MENTAL RETARDATION
  5. RISPERDAL [Concomitant]
     Indication: AUTISM
  6. DEPAKOTE [Suspect]
     Indication: AUTISM
     Dates: end: 20110306

REACTIONS (6)
  - GASTROINTESTINAL HAEMORRHAGE [None]
  - ABDOMINAL PAIN [None]
  - PANCREATIC CYST [None]
  - PANCREATIC ENZYMES INCREASED [None]
  - PANCREATITIS [None]
  - VOMITING [None]
